FAERS Safety Report 6822876-0 (Version None)
Quarter: 2010Q3

REPORT INFORMATION
  Report Type: 
  Country: None (occurrence: None)
  Receive Date: 20100706
  Receipt Date: 20100706
  Transmission Date: 20110219
  Serious: Yes (Death, Other)
  Sender: FDA-Public Use
  Company Number: None

PATIENT
  Age: 77 Year
  Sex: Female
  Weight: 83.9154 kg

DRUGS (1)
  1. FLUOXETINE [Suspect]
     Indication: ANXIETY
     Dosage: 1 CAPSULE EVERYDAY PO
     Route: 048
     Dates: start: 20091105, end: 20091113

REACTIONS (2)
  - COMPLETED SUICIDE [None]
  - MOOD ALTERED [None]
